FAERS Safety Report 24114624 (Version 2)
Quarter: 2024Q3

REPORT INFORMATION
  Report Type: Spontaneous
  Country: US (occurrence: US)
  Receive Date: 20240720
  Receipt Date: 20240810
  Transmission Date: 20241016
  Serious: No
  Sender: IRONSHORE PHARMA
  Company Number: US-Ironshore Pharmaceuticals Inc.-IRON20240962

PATIENT
  Age: 14 Year
  Sex: Female
  Weight: 56.6 kg

DRUGS (2)
  1. JORNAY PM EXTENDED-RELEASE [Suspect]
     Active Substance: METHYLPHENIDATE HYDROCHLORIDE
     Indication: Attention deficit hyperactivity disorder
     Dosage: 40 MG
     Route: 048
     Dates: start: 20240115, end: 20240301
  2. JORNAY PM EXTENDED-RELEASE [Suspect]
     Active Substance: METHYLPHENIDATE HYDROCHLORIDE
     Dosage: 40 MG, EVERY NIGHT
     Route: 048
     Dates: start: 20231110, end: 20231201

REACTIONS (5)
  - Suicidal ideation [Recovered/Resolved]
  - Anger [Recovered/Resolved]
  - Agitation [Recovered/Resolved]
  - Intentional self-injury [Recovered/Resolved]
  - Depressed mood [Not Recovered/Not Resolved]
